FAERS Safety Report 21458154 (Version 1)
Quarter: 2022Q4

REPORT INFORMATION
  Report Type: Report from Study
  Country: IT (occurrence: IT)
  Receive Date: 20221014
  Receipt Date: 20221014
  Transmission Date: 20230113
  Serious: Yes (Other)
  Sender: FDA-Public Use
  Company Number: None

PATIENT
  Age: 69 Year
  Sex: Male

DRUGS (3)
  1. AZITHROMYCIN [Suspect]
     Active Substance: AZITHROMYCIN
     Indication: Anti-infective therapy
     Dosage: 500 MH 3 TIMES PER WEEK
     Route: 048
     Dates: start: 20220401, end: 20220526
  2. ETHAMBUTOL HYDROCHLORIDE [Suspect]
     Active Substance: ETHAMBUTOL HYDROCHLORIDE
     Indication: Anti-infective therapy
     Dosage: 400 MG 3 TIMES A WEEK
     Route: 048
     Dates: start: 20220331, end: 20220526
  3. RIFADIN [Suspect]
     Active Substance: RIFAMPIN
     Indication: Anti-infective therapy
     Dosage: 600 MG 3 TIMES PER WEEK
     Route: 048
     Dates: start: 20220328, end: 20220526

REACTIONS (1)
  - Leukopenia [Unknown]

NARRATIVE: CASE EVENT DATE: 20220428
